FAERS Safety Report 16559620 (Version 1)
Quarter: 2019Q3

REPORT INFORMATION
  Report Type: Spontaneous
  Country: IT (occurrence: IT)
  Receive Date: 20190711
  Receipt Date: 20190711
  Transmission Date: 20191004
  Serious: Yes (Life-Threatening, Hospitalization, Other)
  Sender: FDA-Public Use
  Company Number: IT-STRIDES ARCOLAB LIMITED-2019SP005831

PATIENT
  Age: 32 Year
  Sex: Male
  Weight: 107 kg

DRUGS (8)
  1. GONADOTROPIN [Suspect]
     Active Substance: CHORIOGONADOTROPIN ALFA
     Indication: LIBIDO DECREASED
     Dosage: UNK (FOR ABOUT TWO YEARS)
     Route: 065
     Dates: start: 2015, end: 2016
  2. CREATINE [Suspect]
     Active Substance: CREATINE
     Indication: PRODUCT USED FOR UNKNOWN INDICATION
     Dosage: UNK (SEVEN DAYS PER MONTH)
     Route: 065
  3. ENANTONE LP [Suspect]
     Active Substance: LEUPROLIDE ACETATE
     Indication: PRODUCT USED FOR UNKNOWN INDICATION
     Dosage: 500 MG EVERY 24 HOURS
     Route: 048
  4. IBUPROFEN. [Suspect]
     Active Substance: IBUPROFEN
     Indication: BACK PAIN
     Dosage: 600 MG, EVERY 24 HOURS
     Route: 065
     Dates: start: 2014, end: 2015
  5. IBUPROFEN. [Suspect]
     Active Substance: IBUPROFEN
     Indication: PAIN IN EXTREMITY
  6. STANOZOLOL [Suspect]
     Active Substance: STANOZOLOL
     Indication: PRODUCT USED FOR UNKNOWN INDICATION
     Dosage: 2 MG/KG, UNKNOWN
     Route: 042
  7. TESTOSTERONE ENANTATE [Suspect]
     Active Substance: TESTOSTERONE
     Indication: PRODUCT USED FOR UNKNOWN INDICATION
     Dosage: FOR TWO MONTHS AT A DOSE OF 500 MG IM PER WEEK
     Route: 030
     Dates: start: 201605, end: 201606
  8. MESTEROLONE [Suspect]
     Active Substance: MESTEROLONE
     Indication: LIBIDO DECREASED
     Dosage: UNK (FOR ABOUT TWO YEARS)
     Route: 065
     Dates: start: 2015, end: 2016

REACTIONS (15)
  - Nephropathy toxic [Recovered/Resolved]
  - Anaemia [Unknown]
  - Hypertension [Recovered/Resolved]
  - End stage renal disease [Recovered/Resolved]
  - Proteinuria [Recovered/Resolved]
  - Drug abuse [Recovered/Resolved]
  - Hepatic steatosis [Unknown]
  - Left ventricular hypertrophy [Unknown]
  - Focal segmental glomerulosclerosis [Recovered/Resolved]
  - Chronic kidney disease [Recovered/Resolved]
  - Polyuria [Recovered/Resolved]
  - Glomerulonephritis [Recovered/Resolved]
  - Hypokinesia [Recovered/Resolved]
  - Nephrotic syndrome [Recovered/Resolved]
  - Azoospermia [Unknown]

NARRATIVE: CASE EVENT DATE: 201607
